FAERS Safety Report 11349446 (Version 5)
Quarter: 2015Q3

REPORT INFORMATION
  Report Type: Spontaneous
  Country: JP (occurrence: JP)
  Receive Date: 20150807
  Receipt Date: 20150908
  Transmission Date: 20151125
  Serious: Yes (Death, Life-Threatening, Hospitalization, Disabling, Other)
  Sender: FDA-Public Use
  Company Number: PHJP2015JP011122

PATIENT
  Age: 53 Year
  Sex: Female
  Weight: 47 kg

DRUGS (16)
  1. MAGLAX [Concomitant]
     Active Substance: MAGNESIUM OXIDE
     Indication: CONSTIPATION
     Dosage: 330 MG, TID
     Route: 048
     Dates: start: 20140417, end: 20140717
  2. AFINITOR [Suspect]
     Active Substance: EVEROLIMUS
     Indication: INVASIVE DUCTAL BREAST CARCINOMA
  3. TAMOXIFEN [Suspect]
     Active Substance: TAMOXIFEN
     Indication: CHEMOTHERAPY
     Dosage: UNK
     Route: 065
  4. AFINITOR [Suspect]
     Active Substance: EVEROLIMUS
     Indication: BREAST CANCER RECURRENT
     Dosage: 10 MG, QD
     Route: 048
     Dates: start: 20140403, end: 20140717
  5. LEUPRORELIN [Suspect]
     Active Substance: LEUPROLIDE ACETATE
     Indication: CHEMOTHERAPY
     Dosage: UNK
     Route: 065
  6. CYCLOPHOSPHAMIDE. [Suspect]
     Active Substance: CYCLOPHOSPHAMIDE
     Indication: CHEMOTHERAPY
     Dosage: UNK
     Route: 065
  7. FULVESTRANT [Suspect]
     Active Substance: FULVESTRANT
     Indication: CHEMOTHERAPY
     Dosage: UNK
     Route: 065
  8. LOXONIN [Concomitant]
     Active Substance: LOXOPROFEN SODIUM
     Indication: ANALGESIC THERAPY
     Dosage: 60 MG, TID
     Route: 048
     Dates: start: 20140403, end: 20140717
  9. PACLITAXEL. [Suspect]
     Active Substance: PACLITAXEL
     Indication: CHEMOTHERAPY
     Dosage: 10 MG, UNK
     Route: 048
  10. TRAMAL [Concomitant]
     Active Substance: TRAMADOL
     Dosage: 50 MG, QID
     Route: 048
  11. EXEMESTANE. [Suspect]
     Active Substance: EXEMESTANE
     Indication: CHEMOTHERAPY
     Dosage: UNK
     Route: 065
     Dates: start: 20140418
  12. 5-FLUOROURACIL [Suspect]
     Active Substance: FLUOROURACIL
     Indication: CHEMOTHERAPY
     Dosage: UNK
     Route: 065
  13. BEVACIZUMAB [Suspect]
     Active Substance: BEVACIZUMAB
     Indication: CHEMOTHERAPY
     Dosage: UNK
     Route: 065
  14. MUCOSTA [Concomitant]
     Active Substance: REBAMIPIDE
     Indication: ANALGESIC THERAPY
     Dosage: 100 MG, TID
     Route: 048
     Dates: start: 20140403, end: 20140717
  15. EPIRUBICIN [Suspect]
     Active Substance: EPIRUBICIN
     Indication: CHEMOTHERAPY
     Dosage: UNK
     Route: 065
  16. TRAMAL [Concomitant]
     Active Substance: TRAMADOL
     Indication: ANALGESIC THERAPY
     Dosage: 25 MG, QID
     Route: 048
     Dates: start: 20140403, end: 20140717

REACTIONS (12)
  - Malignant neoplasm progression [Fatal]
  - Arterial haemorrhage [Recovering/Resolving]
  - Shock haemorrhagic [Recovering/Resolving]
  - Necrosis [Unknown]
  - Malignant pleural effusion [Fatal]
  - Arterial injury [Unknown]
  - Throat irritation [Unknown]
  - Tumour necrosis [Not Recovered/Not Resolved]
  - Haemorrhage [Recovering/Resolving]
  - Axillary mass [Unknown]
  - Dehydration [Unknown]
  - Metastases to lung [Fatal]

NARRATIVE: CASE EVENT DATE: 20140717
